FAERS Safety Report 4550322-9 (Version None)
Quarter: 2004Q4

REPORT INFORMATION
  Report Type: 
  Country: None (occurrence: None)
  Receive Date: 20041227
  Receipt Date: 20041108
  Transmission Date: 20050328
  Serious: No
  Sender: FDA-Public Use
  Company Number: 04P-163-0280104-00

PATIENT
  Age: 74 Year
  Sex: Female
  Weight: 74.8435 kg

DRUGS (16)
  1. HUMIRA [Suspect]
     Indication: RHEUMATOID ARTHRITIS
     Dosage: 40 MG, 1 IN 2 WK, SUBCUTANEOUS
     Route: 058
     Dates: start: 20040701
  2. OMEPRAZOLE [Concomitant]
  3. SELENDEC [Concomitant]
  4. RISEDRONATE SODIUM [Concomitant]
  5. AZATHIOPRINE [Concomitant]
  6. CALCIUM CITRATE [Concomitant]
  7. ERGOCALCIFEROL [Concomitant]
  8. CYANOCOBALAMIN [Concomitant]
  9. ANTIOXIDEN [Concomitant]
  10. ISOBADE [Concomitant]
  11. DILTIAZEM HCL [Concomitant]
  12. IRBESARTAN [Concomitant]
  13. ASPIRIN [Concomitant]
  14. CLOPIDOGREL BISULFATE [Concomitant]
  15. METOPROLOL SUCCINATE [Concomitant]
  16. PREDNISONE [Concomitant]

REACTIONS (1)
  - BLOOD PRESSURE INCREASED [None]
